FAERS Safety Report 15518662 (Version 1)
Quarter: 2018Q4

REPORT INFORMATION
  Report Type: Spontaneous
  Country: JP (occurrence: JP)
  Receive Date: 20181017
  Receipt Date: 20181017
  Transmission Date: 20190205
  Serious: Yes (Hospitalization, Other)
  Sender: FDA-Public Use
  Company Number: JP-SHIRE-JP201814634

PATIENT

DRUGS (5)
  1. CINACALCET. [Concomitant]
     Active Substance: CINACALCET
     Indication: PRODUCT USED FOR UNKNOWN INDICATION
  2. FOSRENOL [Suspect]
     Active Substance: LANTHANUM CARBONATE
     Dosage: 750 MG, 1X/DAY:QD
     Route: 065
     Dates: start: 200908, end: 201301
  3. FOSRENOL [Suspect]
     Active Substance: LANTHANUM CARBONATE
     Dosage: 500 MG, 1X/DAY:QD
     Route: 065
  4. VITAMIN D [Concomitant]
     Active Substance: CHOLECALCIFEROL
     Indication: PRODUCT USED FOR UNKNOWN INDICATION
  5. FOSRENOL [Suspect]
     Active Substance: LANTHANUM CARBONATE
     Indication: HYPERPHOSPHATAEMIA
     Dosage: 250 MG, UNK
     Route: 065

REACTIONS (2)
  - Product residue present [Unknown]
  - Gastric cancer [Unknown]

NARRATIVE: CASE EVENT DATE: 201311
